FAERS Safety Report 9182334 (Version 1)
Quarter: 2012Q4

REPORT INFORMATION
  Report Type: Report from Study
  Country: JP (occurrence: JP)
  Receive Date: 20121030
  Receipt Date: 20121030
  Transmission Date: 20130627
  Serious: Yes (Other)
  Sender: FDA-Public Use
  Company Number: JP-VERTEX PHARMACEUTICAL INC.-2012-023678

PATIENT
  Age: 73 Year
  Sex: Female

DRUGS (9)
  1. VX-950 [Suspect]
     Indication: HEPATITIS C
     Dosage: 1000 mg, qd
     Route: 048
     Dates: start: 20120425, end: 20120716
  2. RIBAVIRIN [Suspect]
     Indication: HEPATITIS C
     Dosage: 400 mg, qd
     Route: 048
     Dates: start: 20120425, end: 20120528
  3. RIBAVIRIN [Suspect]
     Dosage: 300 mg, qd
     Route: 048
     Dates: start: 20120529, end: 20120618
  4. RIBAVIRIN [Suspect]
     Dosage: 400 mg, qd
     Route: 048
     Dates: start: 20120619, end: 20120709
  5. RIBAVIRIN [Suspect]
     Dosage: 200 mg, qd
     Route: 048
     Dates: start: 20120710, end: 20120812
  6. RIBAVIRIN [Suspect]
     Dosage: 400 mg, qd
     Route: 048
     Dates: start: 20120813, end: 20121008
  7. PEGINTRON                          /01543001/ [Suspect]
     Indication: HEPATITIS C
     Dosage: 1.5 �g/kg, UNK
     Route: 058
     Dates: start: 20120425, end: 20120507
  8. PEGINTRON                          /01543001/ [Suspect]
     Dosage: 1.3 �g/kg, UNK
     Route: 058
     Dates: start: 20120508, end: 20120729
  9. PEGINTRON                          /01543001/ [Suspect]
     Dosage: 1.1 �g/kg, UNK
     Route: 058
     Dates: start: 20120730

REACTIONS (1)
  - Neutrophil count decreased [Not Recovered/Not Resolved]
